FAERS Safety Report 10094409 (Version 1)
Quarter: 2014Q2

REPORT INFORMATION
  Report Type: Spontaneous
  Country: US (occurrence: None)
  Receive Date: 20140421
  Receipt Date: 20140421
  Transmission Date: 20141212
  Serious: Yes (Other)
  Sender: FDA-Public Use
  Company Number: None

PATIENT
  Age: 62 Year
  Sex: Female

DRUGS (1)
  1. CLINDAMYCIN HCL [Suspect]
     Indication: INFECTION
     Dosage: 1 CAPSULE, FOUR TIMES DAILY, TAKEN BY MOUTH
     Route: 048
     Dates: start: 20120101, end: 20120101

REACTIONS (2)
  - Hypersensitivity [None]
  - Urticaria [None]
